FAERS Safety Report 8016665-1 (Version None)
Quarter: 2012Q1

REPORT INFORMATION
  Report Type: 
  Country: None (occurrence: None)
  Receive Date: 20120102
  Receipt Date: 20111222
  Transmission Date: 20120608
  Serious: Yes (Other)
  Sender: FDA-Public Use
  Company Number: BE-BRISTOL-MYERS SQUIBB COMPANY-16302101

PATIENT
  Age: 59 Year
  Sex: Female
  Weight: 133 kg

DRUGS (2)
  1. IPILIMUMAB [Suspect]
     Indication: MALIGNANT MELANOMA
     Dosage: NO OF DOSE:2
  2. INNOHEP [Concomitant]

REACTIONS (3)
  - MYOSITIS [None]
  - VISION BLURRED [None]
  - EYELID OEDEMA [None]
